FAERS Safety Report 4697450-5 (Version None)
Quarter: 2005Q2

REPORT INFORMATION
  Report Type: 
  Country: None (occurrence: None)
  Receive Date: 20050621
  Receipt Date: 20050607
  Transmission Date: 20051028
  Serious: Yes (Hospitalization)
  Sender: FDA-Public Use
  Company Number: USA040669976

PATIENT
  Age: 76 Year
  Sex: Female

DRUGS (3)
  1. FORTEO [Suspect]
     Indication: OSTEOPOROSIS
     Dosage: 20 UG/1 DAY
     Dates: start: 20040301
  2. MULTI-VITAMIN [Concomitant]
  3. CALCIUM GLUCONATE [Concomitant]

REACTIONS (6)
  - BLOOD PRESSURE INCREASED [None]
  - DIARRHOEA [None]
  - DRUG DOSE OMISSION [None]
  - FALL [None]
  - INJECTION SITE HAEMORRHAGE [None]
  - PHARMACEUTICAL PRODUCT COMPLAINT [None]
